FAERS Safety Report 23522214 (Version 3)
Quarter: 2024Q2

REPORT INFORMATION
  Report Type: Spontaneous
  Country: US (occurrence: US)
  Receive Date: 20240214
  Receipt Date: 20240417
  Transmission Date: 20240716
  Serious: No
  Sender: FDA-Public Use
  Company Number: US-PFIZER INC-202400027681

PATIENT
  Age: 18 Year
  Sex: Male

DRUGS (1)
  1. GENOTROPIN [Suspect]
     Active Substance: SOMATROPIN
     Dosage: 4 MG, DAILY
     Dates: start: 202305

REACTIONS (3)
  - Device issue [Unknown]
  - Device use issue [Unknown]
  - Drug dose omission by device [Unknown]
